FAERS Safety Report 6038066-8 (Version None)
Quarter: 2009Q1

REPORT INFORMATION
  Report Type: 
  Country: None (occurrence: None)
  Receive Date: 20090115
  Receipt Date: 20090108
  Transmission Date: 20090719
  Serious: Yes (Hospitalization, Disabling)
  Sender: FDA-Public Use
  Company Number: BR-BIOGENIDEC-2008BI024697

PATIENT
  Age: 37 Year
  Sex: Female

DRUGS (1)
  1. AVONEX [Suspect]
     Indication: MULTIPLE SCLEROSIS
     Route: 030

REACTIONS (5)
  - ADVERSE DRUG REACTION [None]
  - BALANCE DISORDER [None]
  - COORDINATION ABNORMAL [None]
  - MOBILITY DECREASED [None]
  - MULTIPLE SCLEROSIS [None]
